FAERS Safety Report 14317019 (Version 5)
Quarter: 2018Q2

REPORT INFORMATION
  Report Type: Spontaneous
  Country: JP (occurrence: JP)
  Receive Date: 20171222
  Receipt Date: 20180409
  Transmission Date: 20180711
  Serious: Yes (Hospitalization, Disabling, Other)
  Sender: FDA-Public Use
  Company Number: PHJP2017JP036441

PATIENT
  Age: 73 Year
  Sex: Female
  Weight: 31.7 kg

DRUGS (13)
  1. PREDNISOLONE. [Suspect]
     Active Substance: PREDNISOLONE
     Dosage: UNK UNK, BID
     Route: 048
     Dates: start: 201409
  2. GLACTIV [Suspect]
     Active Substance: SITAGLIPTIN
     Indication: DIABETES MELLITUS
     Dosage: 25 MG, QD
     Route: 048
  3. CONIEL [Suspect]
     Active Substance: BENIDIPINE HYDROCHLORIDE
     Indication: HYPERTENSION
     Dosage: 4 MG, QD
     Route: 048
  4. KALGUT [Suspect]
     Active Substance: DENOPAMINE
     Indication: ARRHYTHMIA
     Dosage: 5 MG, TID
     Route: 048
  5. LASIX [Suspect]
     Active Substance: FUROSEMIDE
     Indication: HYPERTENSION
     Dosage: 40 MG, QD
     Route: 048
  6. AZULFIDINE EN-TABS [Suspect]
     Active Substance: SULFASALAZINE
     Indication: POLYMYALGIA RHEUMATICA
     Dosage: 500 MG, BID
     Route: 048
  7. PREDNISOLONE. [Suspect]
     Active Substance: PREDNISOLONE
     Dosage: 1.5 MG, UNK
     Route: 048
     Dates: start: 201705
  8. NEXIUM [Suspect]
     Active Substance: ESOMEPRAZOLE MAGNESIUM
     Indication: PROPHYLAXIS AGAINST GASTROINTESTINAL ULCER
     Dosage: 20 MG, QD
     Route: 048
  9. PREDNISOLONE. [Suspect]
     Active Substance: PREDNISOLONE
     Indication: POLYMYALGIA RHEUMATICA
     Dosage: UNK UNK, QD
     Route: 048
  10. NEORAL [Suspect]
     Active Substance: CYCLOSPORINE
     Indication: POLYMYALGIA RHEUMATICA
     Dosage: 100 MG, QD
     Route: 048
  11. NEORAL [Suspect]
     Active Substance: CYCLOSPORINE
     Indication: PSORIASIS
     Dosage: 100 MG, QD
     Route: 048
  12. HALFDIGOXIN [Suspect]
     Active Substance: DIGOXIN
     Indication: ARRHYTHMIA
     Dosage: 0.125 MG, QD
     Route: 048
  13. PREDNISOLONE. [Suspect]
     Active Substance: PREDNISOLONE
     Dosage: 1 MG, BID
     Route: 048

REACTIONS (6)
  - Polymyalgia rheumatica [Recovering/Resolving]
  - C-reactive protein increased [Unknown]
  - Psoriatic arthropathy [Recovering/Resolving]
  - Osteonecrosis [Recovered/Resolved with Sequelae]
  - Lymphocyte count decreased [Recovering/Resolving]
  - Spinal compression fracture [Recovered/Resolved with Sequelae]

NARRATIVE: CASE EVENT DATE: 201409
